FAERS Safety Report 23357219 (Version 1)
Quarter: 2024Q1

REPORT INFORMATION
  Report Type: Other
  Country: None (occurrence: RO)
  Receive Date: 20240102
  Receipt Date: 20240102
  Transmission Date: 20240410
  Serious: Yes (Other)
  Sender: FDA-Public Use
  Company Number: RO-B.Braun Medical Inc.-2150023

PATIENT
  Age: 62 Year
  Sex: Male

DRUGS (1)
  1. CEFUROXIME SODIUM [Suspect]
     Active Substance: CEFUROXIME SODIUM

REACTIONS (1)
  - Embolia cutis medicamentosa [None]
